FAERS Safety Report 5967513-2 (Version None)
Quarter: 2008Q4

REPORT INFORMATION
  Report Type: 
  Country: None (occurrence: None)
  Receive Date: 20081125
  Receipt Date: 20081031
  Transmission Date: 20090506
  Serious: Yes (Hospitalization)
  Sender: FDA-Public Use
  Company Number: JP-PFIZER INC-2008088262

PATIENT
  Sex: Female
  Weight: 66 kg

DRUGS (5)
  1. GABAPEN [Suspect]
     Indication: EPILEPSY
     Route: 048
     Dates: start: 20080808, end: 20080831
  2. SELENICA-R [Concomitant]
     Indication: EPILEPSY
     Route: 048
     Dates: start: 19960110
  3. EXCEGRAN [Concomitant]
     Indication: EPILEPSY
     Route: 048
  4. MYSTAN [Concomitant]
     Indication: EPILEPSY
     Route: 048
  5. EPILEO PETIT MAL [Concomitant]
     Indication: EPILEPSY
     Route: 048

REACTIONS (2)
  - CONDITION AGGRAVATED [None]
  - EPILEPSY [None]
